FAERS Safety Report 4991791-X (Version None)
Quarter: 2006Q2

REPORT INFORMATION
  Report Type: 
  Country: None (occurrence: None)
  Receive Date: 20060504
  Receipt Date: 20060123
  Transmission Date: 20061013
  Serious: Yes (Hospitalization)
  Sender: FDA-Public Use
  Company Number: US-AVENTIS-200610825US

PATIENT
  Sex: Male

DRUGS (4)
  1. KETEK [Suspect]
     Dosage: DOSE: UNKNOWN
     Route: 048
  2. KETEK [Suspect]
     Dosage: DOSE: UNKNOWN
     Route: 048
  3. LIPITOR [Concomitant]
     Dosage: DOSE: UNKNOWN
  4. LEVAQUIN [Concomitant]
     Dosage: DOSE: UNKNOWN

REACTIONS (1)
  - JAUNDICE CHOLESTATIC [None]
